FAERS Safety Report 9293864 (Version 2)
Quarter: 2013Q2

REPORT INFORMATION
  Report Type: Spontaneous
  Country: US (occurrence: None)
  Receive Date: 20121217
  Receipt Date: 20130607
  Transmission Date: 20140414
  Serious: Yes (Other)
  Sender: FDA-Public Use
  Company Number: 068410

PATIENT
  Sex: Male
  Weight: 77.1 kg

DRUGS (2)
  1. ROTIGOTINE [Suspect]
     Indication: PARKINSON^S DISEASE
     Dosage: (TO NOT CONTINUING)
  2. STALEVO [Concomitant]

REACTIONS (1)
  - Abdominal discomfort [None]
